FAERS Safety Report 5481131-4 (Version None)
Quarter: 2007Q4

REPORT INFORMATION
  Report Type: 
  Country: None (occurrence: None)
  Receive Date: 20071004
  Receipt Date: 20070921
  Transmission Date: 20080405
  Serious: Yes (Hospitalization)
  Sender: FDA-Public Use
  Company Number: 238089K07USA

PATIENT
  Age: 50 Year
  Sex: Female
  Weight: 72.5755 kg

DRUGS (1)
  1. REBIF [Suspect]
     Indication: MULTIPLE SCLEROSIS
     Dates: end: 20070101

REACTIONS (4)
  - ALCOHOLISM [None]
  - AMNESIA [None]
  - LOCALISED INFECTION [None]
  - MYOCARDIAL INFARCTION [None]
